FAERS Safety Report 9028964 (Version 2)
Quarter: 2013Q1

REPORT INFORMATION
  Report Type: Spontaneous
  Country: FR (occurrence: FR)
  Receive Date: 20130124
  Receipt Date: 20130206
  Transmission Date: 20140127
  Serious: Yes (Other)
  Sender: FDA-Public Use
  Company Number: FR-PFIZER INC-2013025992

PATIENT
  Age: 43 Year
  Sex: Female

DRUGS (1)
  1. TRINORDIOL [Suspect]
     Dosage: TRIPHASIC ETHINYLESTRADIOL 30-40-30 ?G/ LEVONORGESTREL 50-75-125 ?G
     Dates: start: 1993

REACTIONS (1)
  - Hypertension [Unknown]
